FAERS Safety Report 19634634 (Version 1)
Quarter: 2021Q3

REPORT INFORMATION
  Report Type: Spontaneous
  Country: JP (occurrence: JP)
  Receive Date: 20210729
  Receipt Date: 20210729
  Transmission Date: 20211014
  Serious: Yes (Other)
  Sender: FDA-Public Use
  Company Number: JP-ASTRAZENECA-2021A604837

PATIENT
  Age: 46 Year
  Sex: Male

DRUGS (6)
  1. RISPERDAL [Concomitant]
     Active Substance: RISPERIDONE
     Indication: PROPHYLAXIS
     Dosage: 1 MG/DAY, UNKNOWN FREQ.
     Route: 065
  2. MEROPENEM. [Concomitant]
     Active Substance: MEROPENEM
     Indication: INFECTION
     Dosage: UNK UNK, UNKNOWN FREQ.
     Route: 065
  3. SEROQUEL [Suspect]
     Active Substance: QUETIAPINE FUMARATE
     Indication: PROPHYLAXIS
     Dosage: 25 MG
     Route: 048
  4. AMPICILLIN AND SULBACTAM [Concomitant]
     Active Substance: AMPICILLIN SODIUM\SULBACTAM SODIUM
     Indication: FUSOBACTERIUM INFECTION
     Dosage: UNK UNK, UNKNOWN FREQ.
     Route: 065
  5. SEROQUEL [Suspect]
     Active Substance: QUETIAPINE FUMARATE
     Indication: PROPHYLAXIS
     Dosage: 50 MG
     Route: 048
  6. AMPICILLIN AND SULBACTAM [Concomitant]
     Active Substance: AMPICILLIN SODIUM\SULBACTAM SODIUM
     Indication: BACTERIAL INFECTION
     Dosage: UNK UNK, UNKNOWN FREQ.
     Route: 065

REACTIONS (2)
  - Miller Fisher syndrome [Unknown]
  - Off label use [Unknown]
